FAERS Safety Report 17136428 (Version 3)
Quarter: 2020Q4

REPORT INFORMATION
  Report Type: Report from Study
  Country: CA (occurrence: CA)
  Receive Date: 20191210
  Receipt Date: 20201113
  Transmission Date: 20210113
  Serious: Yes (Other)
  Sender: FDA-Public Use
  Company Number: CA-JNJFOC-20191028099

PATIENT
  Age: 59 Year
  Sex: Female
  Weight: 60.3 kg

DRUGS (1)
  1. REMICADE [Suspect]
     Active Substance: INFLIXIMAB
     Indication: CROHN^S DISEASE
     Dosage: ON 05-NOV-2020, THE PATIENT RECEIVED 67 TH 600 MG INFLIXIMAB INFUSION
     Route: 042
     Dates: start: 20130228

REACTIONS (1)
  - Basal cell carcinoma [Recovered/Resolved]
